FAERS Safety Report 23914818 (Version 1)
Quarter: 2024Q2

REPORT INFORMATION
  Report Type: Spontaneous
  Country: CN (occurrence: CN)
  Receive Date: 20240529
  Receipt Date: 20240529
  Transmission Date: 20240716
  Serious: Yes (Other)
  Sender: FDA-Public Use
  Company Number: CN-PFIZER INC-PV202400069418

PATIENT
  Age: 10 Year
  Sex: Female
  Weight: 21.8 kg

DRUGS (2)
  1. CYTARABINE [Suspect]
     Active Substance: CYTARABINE
     Indication: Acute myeloid leukaemia
     Dosage: 0.085 G, 2X/DAY
     Route: 041
     Dates: start: 20240511, end: 20240512
  2. CYTARABINE [Suspect]
     Active Substance: CYTARABINE
     Dosage: 0.085 G, 2X/DAY
     Route: 041
     Dates: start: 20240514, end: 20240518

REACTIONS (3)
  - Immune system disorder [Unknown]
  - Pyrexia [Recovered/Resolved]
  - Coinfection [Unknown]

NARRATIVE: CASE EVENT DATE: 20240512
